FAERS Safety Report 8206166-X (Version None)
Quarter: 2012Q1

REPORT INFORMATION
  Report Type: 
  Country: None (occurrence: None)
  Receive Date: 20120313
  Receipt Date: 20120302
  Transmission Date: 20120608
  Serious: Yes (Hospitalization)
  Sender: FDA-Public Use
  Company Number: DE-ROCHE-1037074

PATIENT
  Age: 62 Year
  Sex: Male
  Weight: 62 kg

DRUGS (9)
  1. BUDESONIDE [Suspect]
     Dates: start: 20120131
  2. TIOTROPIUM BROMIDE [Suspect]
     Indication: MALIGNANT MELANOMA
     Dates: start: 20091001, end: 20120130
  3. BUDESONIDE [Suspect]
     Indication: MALIGNANT MELANOMA
     Dates: start: 20091001, end: 20120130
  4. TIOTROPIUM BROMIDE [Suspect]
     Dates: start: 20120131
  5. THEOPHYLLINE [Suspect]
     Dates: start: 20120131
  6. FORMOTEROL FUMARATE [Suspect]
     Indication: MALIGNANT MELANOMA
     Dates: start: 20091001, end: 20120130
  7. FORMOTEROL FUMARATE [Suspect]
     Dates: start: 20120131
  8. VEMURAFENIB [Suspect]
     Indication: MALIGNANT MELANOMA
     Dosage: LAST DATE PRIOR TO SAE ON 29 JAN 2012
     Route: 048
     Dates: start: 20120125
  9. THEOPHYLLINE [Suspect]
     Indication: MALIGNANT MELANOMA
     Dates: start: 20091001, end: 20120130

REACTIONS (1)
  - DYSPNOEA [None]
